FAERS Safety Report 15228072 (Version 1)
Quarter: 2018Q3

REPORT INFORMATION
  Report Type: Spontaneous
  Country: US (occurrence: US)
  Receive Date: 20180801
  Receipt Date: 20180801
  Transmission Date: 20181010
  Serious: No
  Sender: FDA-Public Use
  Company Number: US-B.I. PHARMACEUTICALS,INC./RIDGEFIELD-2018-BI-038392

PATIENT
  Age: 63 Year
  Sex: Female

DRUGS (12)
  1. LEVOTHYROXINE. [Concomitant]
     Active Substance: LEVOTHYROXINE
     Indication: HYPOTHYROIDISM
     Dosage: 1 TABLET 1 TIME DAILY;  FORM STRENGTH: 150 MCG; FORMULATION: TABLET
     Route: 048
  2. BENADRYL [Concomitant]
     Active Substance: DIPHENHYDRAMINE HYDROCHLORIDE
     Indication: HYPERSENSITIVITY
     Dosage: QID;  FORM STRENGTH: 25 MG; FORMULATION: TABLET
     Route: 048
  3. SPIRIVA [Suspect]
     Active Substance: TIOTROPIUM BROMIDE MONOHYDRATE
     Indication: EMPHYSEMA
     Dosage: 1 CAPSULE 1 TIME DAILY;  FORM STRENGTH: 18 MCG; FORMULATION: CAPSULE
     Route: 055
     Dates: start: 2012
  4. CLONAZEPAM. [Concomitant]
     Active Substance: CLONAZEPAM
     Indication: PANIC ATTACK
     Dosage: PRN;  FORM STRENGTH: 0.5 MG; FORMULATION: TABLET
     Route: 048
  5. SYMBICORT [Concomitant]
     Active Substance: BUDESONIDE\FORMOTEROL FUMARATE DIHYDRATE
     Indication: EMPHYSEMA
     Dosage: 2 INHALATIONS BID;  FORMULATION: INHALATION AEROSOL;
     Route: 055
     Dates: start: 2012
  6. ASPIRIN. [Concomitant]
     Active Substance: ASPIRIN
     Indication: PAIN
     Dosage: 2 TABLETS QID;  FORM STRENGTH: 325 MG; FORMULATION: TABLET
     Route: 048
  7. FOSAMAX [Concomitant]
     Active Substance: ALENDRONATE SODIUM
     Indication: OSTEOPOROSIS
     Dosage: 1 TABLET PER WEEK;  FORM STRENGTH: 70 MG; FORMULATION: TABLET
     Route: 048
  8. FIORINAL [Concomitant]
     Active Substance: ASPIRIN\BUTALBITAL\CAFFEINE
     Indication: MIGRAINE
     Dosage: PRN;  FORM STRENGTH: 50MG/325MG/40MG; FORMULATION: TABLET
     Route: 048
  9. PROAIR HFA [Concomitant]
     Active Substance: ALBUTEROL SULFATE
     Indication: EMPHYSEMA
     Dosage: PRN;  FORMULATION: INHALATION AEROSOL;
     Route: 055
  10. TIZANIDINE. [Concomitant]
     Active Substance: TIZANIDINE
     Indication: PRODUCT USED FOR UNKNOWN INDICATION
     Dosage: 1 TABLET Q 6 HR;  FORM STRENGTH: 4 MG; FORMULATION: TABLET
     Route: 048
  11. BENZONATATE. [Concomitant]
     Active Substance: BENZONATATE
     Indication: COUGH
     Dosage: PRN;  FORM STRENGTH: 100 MG; FORMULATION: CAPSULE
     Route: 048
  12. VITAMIN D [Concomitant]
     Active Substance: CHOLECALCIFEROL
     Indication: PRODUCT USED FOR UNKNOWN INDICATION
     Dosage: 1 TABLET 1 TIME DAILY;  FORM STRENGTH: 2000 IU; FORMULATION: TABLET
     Route: 048

REACTIONS (4)
  - Cough [Not Recovered/Not Resolved]
  - Dyspnoea [Not Recovered/Not Resolved]
  - Abdominal discomfort [Not Recovered/Not Resolved]
  - Migraine [Not Recovered/Not Resolved]

NARRATIVE: CASE EVENT DATE: 201802
